FAERS Safety Report 7708402-2 (Version None)
Quarter: 2011Q3

REPORT INFORMATION
  Report Type: 
  Country: None (occurrence: None)
  Receive Date: 20110825
  Receipt Date: 20110815
  Transmission Date: 20111222
  Serious: Yes (Other)
  Sender: FDA-Public Use
  Company Number: US-ELI_LILLY_AND_COMPANY-US201108006213

PATIENT
  Sex: Male

DRUGS (2)
  1. LEXAPRO [Concomitant]
  2. ZYPREXA [Suspect]
     Indication: HUNTINGTON'S DISEASE
     Dosage: 20 MG, QD
     Dates: start: 20050101

REACTIONS (2)
  - HUNTINGTON'S DISEASE [None]
  - OFF LABEL USE [None]
